FAERS Safety Report 9777940 (Version 1)
Quarter: 2013Q4

REPORT INFORMATION
  Report Type: Spontaneous
  Country: FR (occurrence: FR)
  Receive Date: 20131223
  Receipt Date: 20131223
  Transmission Date: 20140711
  Serious: Yes (Life-Threatening)
  Sender: FDA-Public Use
  Company Number: FR-BRISTOL-MYERS SQUIBB COMPANY-19910041

PATIENT
  Age: 72 Year
  Sex: Female

DRUGS (14)
  1. DAFALGAN TABS 1 GM [Suspect]
     Route: 048
  2. METFORMIN HCL [Suspect]
     Indication: TYPE 2 DIABETES MELLITUS
     Route: 048
  3. JANUMET [Suspect]
     Indication: TYPE 2 DIABETES MELLITUS
     Dosage: JANUMET 50MG/1000MG,FILM-COATED TAB.
     Route: 048
     Dates: start: 20130622
  4. REPAGLINIDE [Suspect]
     Indication: TYPE 2 DIABETES MELLITUS
     Route: 048
  5. LOXEN LP [Suspect]
     Indication: HYPERTENSION
     Dosage: 50 MG, EXTENDED-RELEASE CAPS.?1DF= 1 CAPS.
     Route: 048
  6. DIFFU-K [Suspect]
     Dosage: CAPS
     Route: 048
  7. LASILIX [Suspect]
     Route: 048
  8. CELIPROLOL HCL [Suspect]
     Indication: HYPERTENSION
     Route: 048
  9. ALLOPURINOL [Suspect]
     Route: 048
  10. LEVOTHYROX [Suspect]
     Indication: HYPOTHYROIDISM
     Dosage: LEVOTHYROX 25 MCG,SCORED TAB.?1DF= 1 TAB.
     Route: 048
  11. TARDYFERON B9 [Suspect]
     Dosage: FILM-COATED TAB.?1DF= 2 TABS
     Route: 048
  12. OMEPRAZOLE [Suspect]
     Route: 048
  13. STILNOX [Suspect]
     Dosage: 10 MG,FILM-COATED SCORED TAB.
     Route: 048
  14. BICIRKAN [Suspect]
     Dosage: FILM-COATED TAB.
     Route: 048

REACTIONS (1)
  - Pancreatic carcinoma metastatic [Not Recovered/Not Resolved]
